FAERS Safety Report 18143365 (Version 1)
Quarter: 2020Q3

REPORT INFORMATION
  Report Type: Spontaneous
  Country: US (occurrence: US)
  Receive Date: 20200813
  Receipt Date: 20200813
  Transmission Date: 20201103
  Serious: No
  Sender: FDA-Public Use
  Company Number: US-BRISTOL-MYERS SQUIBB COMPANY-BMS-2020-064938

PATIENT
  Age: 85 Year
  Sex: Male
  Weight: 77.11 kg

DRUGS (2)
  1. ELIQUIS [Suspect]
     Active Substance: APIXABAN
     Indication: HYPERTENSION
  2. ELIQUIS [Suspect]
     Active Substance: APIXABAN
     Indication: CARDIAC DISORDER
     Dosage: UNK UNK, BID
     Route: 048

REACTIONS (1)
  - Vessel puncture site bruise [Unknown]

NARRATIVE: CASE EVENT DATE: 20200807
